FAERS Safety Report 6607679-4 (Version None)
Quarter: 2010Q1

REPORT INFORMATION
  Report Type: 
  Country: None (occurrence: None)
  Receive Date: 20100301
  Receipt Date: 20100217
  Transmission Date: 20100710
  Serious: Yes (Other)
  Sender: FDA-Public Use
  Company Number: US-ELI_LILLY_AND_COMPANY-US201002005184

PATIENT
  Age: 50 Year
  Sex: Male

DRUGS (5)
  1. ZYPREXA [Suspect]
     Indication: SCHIZOPHRENIA
     Dosage: 15 MG, UNK
  2. HALDOL [Concomitant]
     Dosage: UNK, EACH EVENING
  3. TRICOR [Concomitant]
  4. BENAZEPRIL HYDROCHLORIDE [Concomitant]
     Dosage: 40 MG, UNK
  5. AMANTADINE HCL [Concomitant]
     Dosage: 200 MG, UNK

REACTIONS (1)
  - PROSTATE CANCER [None]
